FAERS Safety Report 18699531 (Version 2)
Quarter: 2021Q1

REPORT INFORMATION
  Report Type: Other
  Country: GB (occurrence: GB)
  Receive Date: 20210105
  Receipt Date: 20210302
  Transmission Date: 20210419
  Serious: Yes (Hospitalization)
  Sender: FDA-Public Use
  Company Number: GB-ROCHE-1910717

PATIENT
  Sex: Female

DRUGS (2)
  1. ROACTEMRA [Suspect]
     Active Substance: TOCILIZUMAB
     Indication: RHEUMATOID ARTHRITIS
     Route: 058
     Dates: start: 20160108
  2. ROACTEMRA [Suspect]
     Active Substance: TOCILIZUMAB
     Route: 058
     Dates: start: 20160112

REACTIONS (7)
  - Pharyngitis [Unknown]
  - Pain in extremity [Unknown]
  - Product dose omission in error [Unknown]
  - Localised infection [Unknown]
  - Lower respiratory tract infection [Unknown]
  - Neoplasm malignant [Unknown]
  - Ill-defined disorder [Unknown]
